FAERS Safety Report 8246133-3 (Version None)
Quarter: 2012Q1

REPORT INFORMATION
  Report Type: 
  Country: None (occurrence: None)
  Receive Date: 20120330
  Receipt Date: 20120327
  Transmission Date: 20120608
  Serious: Yes (Other)
  Sender: FDA-Public Use
  Company Number: PHEH2012US003679

PATIENT
  Sex: Female

DRUGS (4)
  1. VASOTEC [Concomitant]
     Dosage: 20 MG, QD
  2. CLARITIN [Concomitant]
     Dosage: 10 MG, UNK
  3. CELEBREX [Concomitant]
     Dosage: 200 MG, QD
  4. AREDIA [Suspect]
     Indication: MULTIPLE MYELOMA

REACTIONS (11)
  - EPISTAXIS [None]
  - BURSITIS [None]
  - SINUSITIS [None]
  - BREAST CANCER [None]
  - IDIOPATHIC THROMBOCYTOPENIC PURPURA [None]
  - OSTEOPENIA [None]
  - FEBRILE NEUTROPENIA [None]
  - MULTIPLE MYELOMA [None]
  - NEOPLASM PROGRESSION [None]
  - DYSPNOEA [None]
  - INSOMNIA [None]
